FAERS Safety Report 6928840-5 (Version None)
Quarter: 2010Q3

REPORT INFORMATION
  Report Type: 
  Country: None (occurrence: None)
  Receive Date: 20100817
  Receipt Date: 20100803
  Transmission Date: 20110219
  Serious: Yes (Other)
  Sender: FDA-Public Use
  Company Number: PHHY2010NL52458

PATIENT
  Age: 69 Year
  Sex: Female

DRUGS (8)
  1. ACENOCOUMAROL [Interacting]
  2. METOPROLOL TARTRATE [Suspect]
  3. METFORMIN HCL [Suspect]
  4. MICONAZOLE [Interacting]
     Indication: FUNGAL INFECTION
     Dosage: 20 MG/G
  5. BISACODYL [Suspect]
  6. GLIMEPIRIDE [Suspect]
  7. FOSINOPRIL SODIUM [Suspect]
  8. CHLORTHALIDONE [Suspect]

REACTIONS (2)
  - DRUG INTERACTION [None]
  - INTERNATIONAL NORMALISED RATIO INCREASED [None]
